FAERS Safety Report 6480482-4 (Version None)
Quarter: 2009Q4

REPORT INFORMATION
  Report Type: 
  Country: None (occurrence: None)
  Receive Date: 20091202
  Receipt Date: 20091118
  Transmission Date: 20100525
  Serious: Yes (Hospitalization)
  Sender: FDA-Public Use
  Company Number: CERZ-1000973

PATIENT
  Age: 70 Year
  Sex: Male

DRUGS (3)
  1. CEREZYME [Suspect]
     Indication: GAUCHER'S DISEASE
     Dosage: 3600 U, Q4W
     Dates: start: 19940919
  2. LEXAPRO [Concomitant]
  3. ALLOPURINOL [Concomitant]

REACTIONS (9)
  - CONTUSION [None]
  - CONVULSION [None]
  - FALL [None]
  - HAEMORRHAGE INTRACRANIAL [None]
  - HEAD INJURY [None]
  - HEADACHE [None]
  - INFUSION SITE MASS [None]
  - PULMONARY HYPERTENSION [None]
  - THROMBOCYTOPENIA [None]
